FAERS Safety Report 4630534-6 (Version None)
Quarter: 2005Q2

REPORT INFORMATION
  Report Type: 
  Country: None (occurrence: None)
  Receive Date: 20050408
  Receipt Date: 20050404
  Transmission Date: 20051028
  Serious: Yes (Other)
  Sender: FDA-Public Use
  Company Number: CA-GLAXOSMITHKLINE-A0552669A

PATIENT
  Age: 26 Year
  Sex: Female
  Weight: 59.1 kg

DRUGS (1)
  1. ZYBAN [Suspect]
     Dosage: 150MG PER DAY
     Route: 048
     Dates: start: 20050326

REACTIONS (3)
  - HAEMATEMESIS [None]
  - INSOMNIA [None]
  - NAUSEA [None]
